FAERS Safety Report 12133563 (Version 1)
Quarter: 2016Q1

REPORT INFORMATION
  Report Type: Report from Study
  Country: CA (occurrence: CA)
  Receive Date: 20160301
  Receipt Date: 20160301
  Transmission Date: 20160526
  Serious: Yes (Hospitalization)
  Sender: FDA-Public Use
  Company Number: CA-BEH-2016059064

PATIENT
  Age: 33 Year
  Sex: Female

DRUGS (1)
  1. BERINERT [Suspect]
     Active Substance: HUMAN C1-ESTERASE INHIBITOR
     Indication: HEREDITARY ANGIOEDEMA
     Dosage: ADMINISTERED VIA PORT-A-CATH WHILE IN HOSPITAL.
     Route: 042
     Dates: start: 20151118

REACTIONS (6)
  - Nausea [Unknown]
  - Anaphylactoid reaction [Recovered/Resolved]
  - Hereditary angioedema [Unknown]
  - Dyspnoea [Recovered/Resolved]
  - Loss of consciousness [Recovered/Resolved]
  - Pneumonia [Unknown]

NARRATIVE: CASE EVENT DATE: 201602
